FAERS Safety Report 21951706 (Version 1)
Quarter: 2023Q1

REPORT INFORMATION
  Report Type: Spontaneous
  Country: US (occurrence: None)
  Receive Date: 20230203
  Receipt Date: 20230203
  Transmission Date: 20230418
  Serious: Yes (unspecified)
  Sender: FDA-Public Use
  Company Number: None

PATIENT
  Age: 72 Year
  Sex: Female
  Weight: 85.5 kg

DRUGS (2)
  1. NP THYROID [Suspect]
     Active Substance: LEVOTHYROXINE\LIOTHYRONINE
     Indication: Hypothyroidism
     Dosage: OTHER QUANTITY : 1 TABLET(S);?FREQUENCY : DAILY;?
     Route: 048
     Dates: start: 20190104, end: 20230203
  2. Vitamins for women over 50 [Concomitant]

REACTIONS (9)
  - Fatigue [None]
  - Myalgia [None]
  - Arthralgia [None]
  - Memory impairment [None]
  - Temperature intolerance [None]
  - Feeling cold [None]
  - Product quality issue [None]
  - Condition aggravated [None]
  - Product measured potency issue [None]

NARRATIVE: CASE EVENT DATE: 20230111
